FAERS Safety Report 6908298-2 (Version None)
Quarter: 2010Q3

REPORT INFORMATION
  Report Type: 
  Country: None (occurrence: None)
  Receive Date: 20100803
  Receipt Date: 20100726
  Transmission Date: 20110219
  Serious: Yes (Other)
  Sender: FDA-Public Use
  Company Number: 2010SP031302

PATIENT
  Age: 57 Year
  Sex: Female

DRUGS (3)
  1. SAPHRIS [Suspect]
     Indication: BIPOLAR DISORDER
     Dosage: 5 MG; BID; SL
     Route: 060
     Dates: start: 20100519, end: 20100602
  2. SAPHRIS [Suspect]
     Indication: PARANOIA
     Dosage: 5 MG; BID; SL
     Route: 060
     Dates: start: 20100519, end: 20100602
  3. LUVOX [Concomitant]

REACTIONS (1)
  - CONTUSION [None]
